FAERS Safety Report 14325356 (Version 1)
Quarter: 2017Q4

REPORT INFORMATION
  Report Type: Spontaneous
  Country: RO (occurrence: RO)
  Receive Date: 20171226
  Receipt Date: 20171226
  Transmission Date: 20180321
  Serious: Yes (Other)
  Sender: FDA-Public Use
  Company Number: PHHY2017RO194087

PATIENT
  Age: 67 Year
  Sex: Female
  Weight: 65 kg

DRUGS (3)
  1. VESSEL DUE F [Concomitant]
     Active Substance: SULODEXIDE
     Indication: ARTERITIS
     Dosage: 2 CAPSULES/DAY, 2 MONTHS/YEAR
     Route: 048
  2. SORTIS [Concomitant]
     Active Substance: ATORVASTATIN
     Indication: HYPERCHOLESTEROLAEMIA
     Route: 048
  3. IMATINIB [Suspect]
     Active Substance: IMATINIB
     Indication: CHRONIC MYELOID LEUKAEMIA
     Dosage: 100 MG, UNK
     Route: 048
     Dates: end: 20171113

REACTIONS (3)
  - Neuropathy peripheral [Recovering/Resolving]
  - Oedema peripheral [Recovering/Resolving]
  - Abscess limb [Recovering/Resolving]

NARRATIVE: CASE EVENT DATE: 20171109
